FAERS Safety Report 7474921-X (Version None)
Quarter: 2011Q2

REPORT INFORMATION
  Report Type: 
  Country: None (occurrence: None)
  Receive Date: 20110512
  Receipt Date: 20080527
  Transmission Date: 20111010
  Serious: Yes (Death, Hospitalization, Other)
  Sender: FDA-Public Use
  Company Number: US-BAYER-200824221NA

PATIENT
  Age: 79 Year
  Sex: Female
  Weight: 68.027 kg

DRUGS (23)
  1. RED BLOOD CELLS, CONCENTRATED [Concomitant]
     Dosage: 11 U, UNK
     Route: 042
  2. DOPAMINE HCL [Concomitant]
     Route: 042
  3. POTASSIUM [POTASSIUM] [Concomitant]
  4. PRAVACHOL [Concomitant]
     Dosage: 40 MG, QD
  5. TOPROL-XL [Concomitant]
     Dosage: 12.5 MG, QD
  6. INSULIN HUMAN [Concomitant]
     Route: 042
  7. VANCOMYCIN [Concomitant]
     Route: 042
  8. PROTAMINE SULFATE [Concomitant]
     Route: 042
  9. TRASYLOL [Suspect]
     Indication: HEART VALVE REPLACEMENT
     Dosage: 1 ML INITIAL DOSE
     Dates: start: 20060119
  10. VERAPAMIL HYDROCHLORIDE [Concomitant]
  11. NITROGLYCERIN [Concomitant]
     Route: 042
  12. PHENYLEPHRINE HCL [Concomitant]
     Route: 042
  13. AZACTAM [Concomitant]
     Route: 042
  14. AMIODARONE HCL [Concomitant]
     Route: 042
  15. SODIUM BICARBONATE [Concomitant]
     Route: 042
  16. CELEXA [Concomitant]
     Dosage: 10 MG, QD
  17. CELEBREX [Concomitant]
     Dosage: 200 MG, BID
  18. EPINEPHRINE [Concomitant]
     Route: 042
  19. PLASMA [Concomitant]
     Dosage: 10 U, UNK
     Route: 042
     Dates: start: 20060119
  20. BREVIBLOCK [Concomitant]
     Route: 042
  21. TRASYLOL [Suspect]
     Dosage: 600ML PER HOUR
     Dates: start: 20060119
  22. LASIX [Concomitant]
  23. DARVOCET [Concomitant]
     Dosage: 100MG AS NEEDED

REACTIONS (5)
  - RENAL FAILURE [None]
  - DEATH [None]
  - ADVERSE EVENT [None]
  - INJURY [None]
  - PAIN [None]
